FAERS Safety Report 19312969 (Version 2)
Quarter: 2021Q4

REPORT INFORMATION
  Report Type: Spontaneous
  Country: US (occurrence: US)
  Receive Date: 20210527
  Receipt Date: 20211029
  Transmission Date: 20220303
  Serious: Yes (Other)
  Sender: FDA-Public Use
  Company Number: US-NOVOPROD-815039

PATIENT
  Sex: Female
  Weight: 140.61 kg

DRUGS (2)
  1. INSULIN NOS [Suspect]
     Active Substance: INSULIN NOS
     Indication: Diabetes mellitus
     Dosage: 3-4 SHOTS DAILY
     Route: 065
  2. NOVORAPID [Suspect]
     Active Substance: INSULIN ASPART

REACTIONS (3)
  - Obesity [Unknown]
  - Diabetes mellitus inadequate control [Unknown]
  - Glycosylated haemoglobin increased [Unknown]
